FAERS Safety Report 8415210-6 (Version None)
Quarter: 2012Q2

REPORT INFORMATION
  Report Type: 
  Country: None (occurrence: None)
  Receive Date: 20120530
  Receipt Date: 20120516
  Transmission Date: 20120825
  Serious: Yes (Other)
  Sender: FDA-Public Use
  Company Number: ADR-2011-9985

PATIENT
  Age: 12 Year
  Sex: Male

DRUGS (2)
  1. BACLOFEN [Suspect]
     Indication: CEREBRAL PALSY
     Dosage: MCG, DAILY, INTRATH
  2. BACLOFEN [Suspect]
     Indication: QUADRIPLEGIA
     Dosage: MCG, DAILY, INTRATH

REACTIONS (3)
  - ARACHNOIDITIS [None]
  - DEVICE BREAKAGE [None]
  - DRUG WITHDRAWAL SYNDROME [None]
